FAERS Safety Report 6854115-9 (Version None)
Quarter: 2010Q3

REPORT INFORMATION
  Report Type: 
  Country: None (occurrence: None)
  Receive Date: 20100717
  Receipt Date: 20071227
  Transmission Date: 20110219
  Serious: No
  Sender: FDA-Public Use
  Company Number: US-PFIZER INC-2008000119

PATIENT
  Sex: Female
  Weight: 70.3 kg

DRUGS (2)
  1. CHANTIX [Suspect]
     Dates: start: 20071225, end: 20071227
  2. AMOXICILLIN [Concomitant]
     Dates: start: 20071220

REACTIONS (8)
  - ABDOMINAL PAIN UPPER [None]
  - DIARRHOEA [None]
  - HEADACHE [None]
  - HYPERSENSITIVITY [None]
  - IRRITABILITY [None]
  - NAUSEA [None]
  - PRURITUS [None]
  - RASH MACULAR [None]
